FAERS Safety Report 10883488 (Version 2)
Quarter: 2015Q1

REPORT INFORMATION
  Report Type: Report from Study
  Country: CA (occurrence: CA)
  Receive Date: 20150303
  Receipt Date: 20150318
  Transmission Date: 20150721
  Serious: Yes (Hospitalization, Other)
  Sender: FDA-Public Use
  Company Number: CA-ROCHE-1539161

PATIENT
  Age: 59 Year
  Sex: Male

DRUGS (16)
  1. SERTRALINE [Concomitant]
     Active Substance: SERTRALINE HYDROCHLORIDE
     Dosage: 2 TABLETS OD
     Route: 065
  2. PANTOPRAZOLE [Concomitant]
     Active Substance: PANTOPRAZOLE SODIUM
     Route: 065
  3. HUMIRA [Concomitant]
     Active Substance: ADALIMUMAB
     Dosage: LAST INJECTION 07-AUG-2014
     Route: 058
  4. ACTEMRA [Suspect]
     Active Substance: TOCILIZUMAB
     Indication: RHEUMATOID ARTHRITIS
     Route: 058
     Dates: start: 20141001
  5. TWYNSTA [Concomitant]
     Active Substance: AMLODIPINE BESYLATE\TELMISARTAN
     Dosage: 80MG/10MG 1 TABLET OD
     Route: 065
  6. DOMPERIDONE [Concomitant]
     Active Substance: DOMPERIDONE
     Route: 065
  7. ACETYLSALICYLIC ACID (ASA) [Concomitant]
     Route: 065
  8. OXAZEPAM. [Concomitant]
     Active Substance: OXAZEPAM
     Route: 065
  9. PREGABALIN. [Concomitant]
     Active Substance: PREGABALIN
  10. ATENOLOL. [Concomitant]
     Active Substance: ATENOLOL
  11. TAMSULOSIN [Concomitant]
     Active Substance: TAMSULOSIN
  12. OXYNEO [Concomitant]
     Active Substance: OXYCODONE
     Dosage: 2 10MG TABLETS OD
     Route: 065
  13. ATORVASTATIN [Concomitant]
     Active Substance: ATORVASTATIN
     Route: 065
  14. OXYCODONE [Concomitant]
     Active Substance: OXYCODONE
     Dosage: 5MG/325MG EVERY 4-6 HOURS AS NEEDED
     Route: 065
  15. VITAMIN B12 [Concomitant]
     Active Substance: CYANOCOBALAMIN
     Route: 065
  16. GLYBURIDE. [Concomitant]
     Active Substance: GLYBURIDE
     Route: 065

REACTIONS (8)
  - Nausea [Recovered/Resolved]
  - Pain [Not Recovered/Not Resolved]
  - Blood potassium decreased [Unknown]
  - Spleen disorder [Recovering/Resolving]
  - Localised intraabdominal fluid collection [Recovering/Resolving]
  - Arrhythmia [Unknown]
  - Abdominal pain [Recovered/Resolved]
  - Asthenia [Not Recovered/Not Resolved]

NARRATIVE: CASE EVENT DATE: 20150212
